FAERS Safety Report 17663706 (Version 2)
Quarter: 2020Q3

REPORT INFORMATION
  Report Type: Spontaneous
  Country: US (occurrence: US)
  Receive Date: 20200414
  Receipt Date: 20200817
  Transmission Date: 20201102
  Serious: Yes (Hospitalization)
  Sender: FDA-Public Use
  Company Number: US-RECORDATI RARE DISEASES-2082809

PATIENT
  Age: 3 Month
  Sex: Female

DRUGS (1)
  1. CARBAGLU [Suspect]
     Active Substance: CARGLUMIC ACID
     Indication: HYPERGLYCINAEMIA
     Dates: start: 202001

REACTIONS (6)
  - Off label use [Unknown]
  - Nasopharyngitis [Unknown]
  - Ammonia increased [Unknown]
  - Constipation [Unknown]
  - Influenza [Unknown]
  - Flatulence [Unknown]

NARRATIVE: CASE EVENT DATE: 2020
